FAERS Safety Report 6575536-8 (Version None)
Quarter: 2010Q1

REPORT INFORMATION
  Report Type: 
  Country: None (occurrence: None)
  Receive Date: 20100208
  Receipt Date: 20100208
  Transmission Date: 20100710
  Serious: Yes (Hospitalization)
  Sender: FDA-Public Use
  Company Number: None

PATIENT
  Sex: Male
  Weight: 70 kg

DRUGS (1)
  1. FLUTAMIDE [Suspect]
     Dosage: 10.8 MG

REACTIONS (2)
  - CHEST PAIN [None]
  - DYSPNOEA [None]
